FAERS Safety Report 9670826 (Version 1)
Quarter: 2013Q4

REPORT INFORMATION
  Report Type: Report from Study
  Country: GB (occurrence: GB)
  Receive Date: 20131106
  Receipt Date: 20131106
  Transmission Date: 20140711
  Serious: Yes (Other)
  Sender: FDA-Public Use
  Company Number: GB-EISAI INC-E7389-04387-SOL-GB

PATIENT
  Age: 61 Year
  Sex: Female
  Weight: 61 kg

DRUGS (1)
  1. HALAVEN [Suspect]
     Indication: BREAST CANCER
     Dosage: UNKNOWN
     Route: 041

REACTIONS (2)
  - Spinal cord compression [Unknown]
  - Monoparesis [Not Recovered/Not Resolved]
